FAERS Safety Report 19791490 (Version 1)
Quarter: 2021Q3

REPORT INFORMATION
  Report Type: Spontaneous
  Country: GB (occurrence: GB)
  Receive Date: 20210906
  Receipt Date: 20210906
  Transmission Date: 20211014
  Serious: Yes (Other)
  Sender: FDA-Public Use
  Company Number: GB-TEVA-2021-GB-1948565

PATIENT
  Age: 69 Year
  Sex: Female
  Weight: 91 kg

DRUGS (8)
  1. AMLODIPINE [Suspect]
     Active Substance: AMLODIPINE BESYLATE
     Dosage: 10 MILLIGRAM DAILY;
     Dates: start: 20210407
  2. ATORVASTATIN [Concomitant]
     Active Substance: ATORVASTATIN
     Dosage: 1 DOSAGE FORMS DAILY;
     Dates: start: 20210407
  3. CANDESARTAN. [Concomitant]
     Active Substance: CANDESARTAN
     Dosage: 1 DOSAGE FORMS DAILY;
     Dates: start: 20210817
  4. NITROFURANTOIN. [Concomitant]
     Active Substance: NITROFURANTOIN
     Dosage: 1 DOSAGE FORMS DAILY;
     Dates: start: 20191101
  5. VESICARE [Concomitant]
     Active Substance: SOLIFENACIN SUCCINATE
     Dosage: 1 DOSAGE FORMS
     Dates: start: 20200806
  6. PREDNISOLONE ACETATE. [Concomitant]
     Active Substance: PREDNISOLONE ACETATE
     Dosage: 1 DROP TDS IN APRIL BD IN MAY AND OD IN JUNE
     Dates: start: 20200324
  7. LEVOTHYROXINE. [Concomitant]
     Active Substance: LEVOTHYROXINE
     Dosage: TAKE 100 MCG AND 125 MCG ON ALTERNATE DAYS
     Dates: start: 20191101
  8. SALBUTAMOL [Concomitant]
     Active Substance: ALBUTEROL
     Indication: DYSPNOEA
     Dosage: 2 DOSAGE FORMS
     Route: 055
     Dates: start: 20191101

REACTIONS (1)
  - Joint swelling [Recovered/Resolved]
